FAERS Safety Report 8472763-X (Version None)
Quarter: 2012Q2

REPORT INFORMATION
  Report Type: 
  Country: None (occurrence: None)
  Receive Date: 20120627
  Receipt Date: 20120622
  Transmission Date: 20120825
  Serious: Yes (Other)
  Sender: FDA-Public Use
  Company Number: PHHY2012IT053448

PATIENT
  Age: 68 Year
  Sex: Male

DRUGS (2)
  1. EVEROLIMUS [Suspect]
     Indication: RENAL TRANSPLANT
     Dosage: UNK
  2. TACROLIMUS [Suspect]
     Indication: RENAL TRANSPLANT
     Dosage: UNK

REACTIONS (5)
  - RASH ERYTHEMATOUS [None]
  - PEMPHIGOID [None]
  - RED BLOOD CELL SEDIMENTATION RATE INCREASED [None]
  - SKIN EROSION [None]
  - DERMATITIS BULLOUS [None]
